FAERS Safety Report 7524643-1 (Version None)
Quarter: 2011Q2

REPORT INFORMATION
  Report Type: 
  Country: None (occurrence: None)
  Receive Date: 20110525
  Receipt Date: 20110510
  Transmission Date: 20111010
  Serious: Yes (Other)
  Sender: FDA-Public Use
  Company Number: 2011MA005766

PATIENT
  Sex: Male

DRUGS (1)
  1. HALOPERIDOL LACTATE [Suspect]
     Dosage: 15 MG, TID

REACTIONS (5)
  - WRONG DRUG ADMINISTERED [None]
  - DYSTONIA [None]
  - CIRCUMSTANCE OR INFORMATION CAPABLE OF LEADING TO MEDICATION ERROR [None]
  - PRODUCT NAME CONFUSION [None]
  - DRUG PRESCRIBING ERROR [None]
